FAERS Safety Report 22087121 (Version 1)
Quarter: 2023Q1

REPORT INFORMATION
  Report Type: Spontaneous
  Country: US (occurrence: US)
  Receive Date: 20230313
  Receipt Date: 20230313
  Transmission Date: 20230418
  Serious: Yes (Other)
  Sender: FDA-Public Use
  Company Number: US-009507513-2303USA001337

PATIENT
  Age: 44 Year
  Sex: Female

DRUGS (4)
  1. KEYTRUDA [Suspect]
     Active Substance: PEMBROLIZUMAB
     Indication: Hodgkin^s disease nodular sclerosis stage IV
     Dosage: WEEKLY TREATMENT
     Dates: start: 202111
  2. DOXORUBICIN [Suspect]
     Active Substance: DOXORUBICIN
     Indication: Hodgkin^s disease nodular sclerosis stage IV
     Dosage: WEEKLY TREATMENT
     Dates: start: 202111
  3. GEMCITABINE [Concomitant]
     Active Substance: GEMCITABINE
     Indication: Hodgkin^s disease nodular sclerosis stage IV
     Dosage: WEEKLY TREATMENT
     Dates: start: 202111
  4. VINORELBINE [Concomitant]
     Active Substance: VINORELBINE TARTRATE
     Indication: Hodgkin^s disease nodular sclerosis stage IV
     Dosage: WEEKLY TREATMENT
     Dates: start: 202111

REACTIONS (1)
  - Osteonecrosis of jaw [Recovering/Resolving]
